FAERS Safety Report 8257598-5 (Version None)
Quarter: 2012Q2

REPORT INFORMATION
  Report Type: 
  Country: None (occurrence: None)
  Receive Date: 20120403
  Receipt Date: 20120327
  Transmission Date: 20120825
  Serious: Yes (Other)
  Sender: FDA-Public Use
  Company Number: PHHY2012GB026407

PATIENT
  Age: 42 Year
  Sex: Female
  Weight: 43.545 kg

DRUGS (8)
  1. LORATADINE [Concomitant]
     Dates: start: 20120103, end: 20120202
  2. MS CONTIN [Concomitant]
     Dates: start: 20111117, end: 20120202
  3. ACETAMINOPHEN [Concomitant]
     Dates: start: 20120103, end: 20120115
  4. TRAMADOL HCL [Concomitant]
     Dates: start: 20111214, end: 20120131
  5. VITAMIN B COMPLEX CAP [Concomitant]
     Dates: start: 20111214, end: 20120131
  6. LANTUS [Concomitant]
     Dosage: UNK
     Dates: start: 20120103, end: 20120131
  7. ALBUTEROL [Concomitant]
     Dates: start: 20120103, end: 20120131
  8. FLUOXETINE [Suspect]
     Dates: start: 20120103

REACTIONS (2)
  - CONDITION AGGRAVATED [None]
  - ABDOMINAL PAIN UPPER [None]
